FAERS Safety Report 24066018 (Version 1)
Quarter: 2024Q3

REPORT INFORMATION
  Report Type: Spontaneous
  Country: US (occurrence: None)
  Receive Date: 20240708
  Receipt Date: 20240708
  Transmission Date: 20241016
  Serious: Yes (Life-Threatening, Disabling)
  Sender: Public
  Company Number: None

PATIENT
  Age: 66 Year
  Sex: Female
  Weight: 81 kg

DRUGS (13)
  1. TRULICITY [Suspect]
     Active Substance: DULAGLUTIDE
     Indication: Type 2 diabetes mellitus
     Dates: start: 20170929, end: 20240215
  2. METFORMIN HYDROCHLORIDE [Concomitant]
     Active Substance: METFORMIN HYDROCHLORIDE
  3. AMITRIPTYLINE HYDROCHLORIDE [Concomitant]
     Active Substance: AMITRIPTYLINE HYDROCHLORIDE
  4. LIVALO [Concomitant]
     Active Substance: PITAVASTATIN CALCIUM
  5. LOSARTAN [Concomitant]
     Active Substance: LOSARTAN
  6. CARVEDILOL [Concomitant]
     Active Substance: CARVEDILOL
  7. ADVIL [Concomitant]
     Active Substance: IBUPROFEN\IBUPROFEN SODIUM
  8. GLUCOSAMINE CALCIUM [Concomitant]
  9. VITAMINS [Concomitant]
     Active Substance: VITAMINS
  10. DEMANNOSE [Concomitant]
     Active Substance: DEMANNOSE
  11. ASPIRIN [Concomitant]
     Active Substance: ASPIRIN
  12. VITAMIN D [Concomitant]
     Active Substance: VITAMIN D NOS
  13. VITAMIN B12 [Concomitant]
     Active Substance: CYANOCOBALAMIN

REACTIONS (3)
  - Dizziness [None]
  - Cerebrovascular accident [None]
  - Huerthle cell carcinoma [None]

NARRATIVE: CASE EVENT DATE: 20240512
